FAERS Safety Report 6542185-7 (Version None)
Quarter: 2010Q1

REPORT INFORMATION
  Report Type: 
  Country: None (occurrence: None)
  Receive Date: 20100119
  Receipt Date: 20091201
  Transmission Date: 20100710
  Serious: Yes (Other)
  Sender: FDA-Public Use
  Company Number: A0832064A

PATIENT
  Age: 34 Year
  Sex: Female

DRUGS (6)
  1. AVANDIA [Suspect]
     Route: 048
     Dates: start: 20050512
  2. DIOVAN [Concomitant]
  3. VYTORIN [Concomitant]
  4. AMARYL [Concomitant]
  5. CLINORIL [Concomitant]
  6. FLEXERIL [Concomitant]

REACTIONS (5)
  - BLINDNESS [None]
  - HEADACHE [None]
  - MACULAR OEDEMA [None]
  - OPEN ANGLE GLAUCOMA [None]
  - VISION BLURRED [None]
